FAERS Safety Report 19490698 (Version 1)
Quarter: 2021Q3

REPORT INFORMATION
  Report Type: Spontaneous
  Country: DE (occurrence: DE)
  Receive Date: 20210705
  Receipt Date: 20210705
  Transmission Date: 20211014
  Serious: Yes (Hospitalization)
  Sender: FDA-Public Use
  Company Number: DE-TEVA-2021-DE-1929463

PATIENT
  Age: 59 Year
  Sex: Male

DRUGS (13)
  1. ENTRESTO [Suspect]
     Active Substance: SACUBITRIL\VALSARTAN
     Dosage: 2 DOSAGE FORMS DAILY; 51|49 MG, 1?0?1?0
     Route: 048
  2. APIDRA 100EINHEITEN/ML PATRONE [Concomitant]
     Dosage: 13 DOSAGE FORMS DAILY; 13?0?0?0, SOLUTION FOR INJECTION / INFUSION,
     Route: 058
  3. SPIRONOLACTON [Suspect]
     Active Substance: SPIRONOLACTONE
     Dosage: 50 MILLIGRAM DAILY; 1?0?0?0
     Route: 048
  4. TOUJEO [Concomitant]
     Active Substance: INSULIN GLARGINE
     Dosage: 24 IU (INTERNATIONAL UNIT) DAILY; 0?0?1?0, SOLUTION FOR INJECTION / INFUSION
     Route: 058
  5. AMIODARON [Concomitant]
     Active Substance: AMIODARONE
     Dosage: 200 MILLIGRAM DAILY; 1?0?0?0
     Route: 048
  6. XIPAMID [Suspect]
     Active Substance: XIPAMIDE
     Dosage: 20 MILLIGRAM DAILY; 1?0?0?0
     Route: 048
  7. METOPROLOL. [Concomitant]
     Active Substance: METOPROLOL
     Dosage: 190 MILLIGRAM DAILY; 95 MG, 1?0?1?0
     Route: 048
  8. TORASEMID [Suspect]
     Active Substance: TORSEMIDE
     Dosage: 50 MILLIGRAM DAILY; 1?0?0?0
     Route: 048
  9. CYANOCOBALAMIN (VITAMIN B12)/ PYRIDOXIN(VITAMIN B6)/ THIAMIN (VITAMIN [Concomitant]
     Dosage: 1 DOSAGE FORMS DAILY; 1?0?0?0
     Route: 048
  10. AMOXICLAV 875/125?1A PHARMA [Concomitant]
     Active Substance: AMOXICILLIN\CLAVULANIC ACID
     Dosage: 2 DOSAGE FORMS DAILY; 125|875 MG, 1?0?1?0
     Route: 048
  11. PREDNISOLON [Suspect]
     Active Substance: PREDNISOLONE
     Dosage: 10 MILLIGRAM DAILY; 1?0?0?0
     Route: 048
  12. TRULICITY 1,5MG INJEKTIONSLOSUNG IN EINEM FERTIGPEN [Concomitant]
     Dosage: 1.5 MG, ONCE A WEEK ON SUNDAYS, SOLUTION FOR INJECTION / INFUSION
     Route: 058
  13. APIXABAN [Suspect]
     Active Substance: APIXABAN
     Dosage: 10 MILLIGRAM DAILY; 1?0?1?0
     Route: 048

REACTIONS (2)
  - Haematemesis [Unknown]
  - Anal haemorrhage [Unknown]

NARRATIVE: CASE EVENT DATE: 20210428
